FAERS Safety Report 23873270 (Version 3)
Quarter: 2024Q2

REPORT INFORMATION
  Report Type: Report from Study
  Country: IT (occurrence: IT)
  Receive Date: 20240520
  Receipt Date: 20240618
  Transmission Date: 20240715
  Serious: Yes (Other)
  Sender: FDA-Public Use
  Company Number: IT-IPSEN Group, Research and Development-2024-08348

PATIENT
  Age: 75 Year
  Sex: Male

DRUGS (2)
  1. CABOMETYX [Suspect]
     Active Substance: CABOZANTINIB S-MALATE
     Indication: Clear cell sarcoma of soft tissue
     Dosage: 40 MG, QD
     Route: 048
     Dates: start: 20230105
  2. NIVOLUMAB [Suspect]
     Active Substance: NIVOLUMAB
     Indication: Clear cell sarcoma of soft tissue
     Dosage: 240MG E.V. DOSE FLAT Q2W
     Route: 042
     Dates: start: 20230105

REACTIONS (1)
  - Adrenal insufficiency [Unknown]

NARRATIVE: CASE EVENT DATE: 20231001
